FAERS Safety Report 11099379 (Version 4)
Quarter: 2015Q3

REPORT INFORMATION
  Report Type: Report from Study
  Country: US (occurrence: US)
  Receive Date: 20150508
  Receipt Date: 20150727
  Transmission Date: 20151125
  Serious: Yes (Death, Hospitalization, Other)
  Sender: FDA-Public Use
  Company Number: US-BIOGENIDEC-2015BI056566

PATIENT
  Age: 70 Year
  Sex: Male

DRUGS (1)
  1. TYSABRI [Suspect]
     Active Substance: NATALIZUMAB
     Indication: MULTIPLE SCLEROSIS
     Route: 042
     Dates: start: 20131022, end: 20150414

REACTIONS (12)
  - Acute kidney injury [Fatal]
  - Blood lactate dehydrogenase increased [Not Recovered/Not Resolved]
  - Tubulointerstitial nephritis [Fatal]
  - Blood bilirubin increased [Not Recovered/Not Resolved]
  - Metabolic encephalopathy [Fatal]
  - Acute leukaemia [Fatal]
  - White blood cell count increased [Not Recovered/Not Resolved]
  - Gallbladder non-functioning [Unknown]
  - Multiple sclerosis [Fatal]
  - Renal tubular necrosis [Fatal]
  - Platelet count decreased [Not Recovered/Not Resolved]
  - Hepatic failure [Unknown]

NARRATIVE: CASE EVENT DATE: 201503
